FAERS Safety Report 8370432-8 (Version None)
Quarter: 2012Q2

REPORT INFORMATION
  Report Type: 
  Country: None (occurrence: None)
  Receive Date: 20120518
  Receipt Date: 20120516
  Transmission Date: 20120825
  Serious: Yes (Death, Other)
  Sender: FDA-Public Use
  Company Number: JP-BAYER-2012-027300

PATIENT
  Age: 58 Year
  Sex: Male
  Weight: 63 kg

DRUGS (10)
  1. URSO 250 [Concomitant]
     Dosage: DAILY DOSE 300 MG
     Route: 048
  2. LOXONIN [Concomitant]
     Dosage: DAILY DOSE 60 MG
     Route: 048
  3. NORVASC [Concomitant]
     Dosage: DAILY DOSE 5 MG
     Route: 048
  4. SORAFENIB (RAF KINASE INHIBITOR) [Suspect]
     Indication: HEPATIC NEOPLASM MALIGNANT
     Dosage: DAILY DOSE 400 MG
     Route: 048
     Dates: start: 20120303, end: 20120310
  5. MEROPENEM [Concomitant]
     Indication: PYREXIA
     Dosage: DAILY DOSE 1.5 G
     Route: 042
  6. NOVORAPID [Concomitant]
     Dosage: DAILY DOSE 9 ML
  7. HIRUDOID [Concomitant]
     Indication: PROPHYLAXIS
     Dosage: UNK
     Route: 061
     Dates: start: 20120302, end: 20120310
  8. PLAVIX [Concomitant]
     Indication: CEREBROVASCULAR ACCIDENT PROPHYLAXIS
     Dosage: DAILY DOSE 75 MG
     Route: 048
  9. DIOVAN [Concomitant]
     Dosage: DAILY DOSE 160 MG
     Route: 048
  10. RABEPRAZOLE SODIUM [Concomitant]
     Indication: GASTRITIS PROPHYLAXIS
     Dosage: DAILY DOSE 10 MG
     Route: 048

REACTIONS (5)
  - BLOOD PRESSURE DECREASED [None]
  - NEUTROPHIL COUNT INCREASED [None]
  - WHITE BLOOD CELL COUNT INCREASED [None]
  - HEPATIC FUNCTION ABNORMAL [None]
  - HEPATIC FAILURE [None]
